FAERS Safety Report 4452579-1 (Version None)
Quarter: 2004Q3

REPORT INFORMATION
  Report Type: 
  Country: None (occurrence: None)
  Receive Date: 20040916
  Receipt Date: 20040907
  Transmission Date: 20050211
  Serious: Yes (Hospitalization)
  Sender: FDA-Public Use
  Company Number: 2004232594FR

PATIENT
  Sex: Female

DRUGS (5)
  1. XANAX [Suspect]
     Dosage: ORAL
     Route: 048
  2. MOTRIN [Suspect]
     Dosage: ORAL
     Route: 048
  3. BIOFLAVONOIDS( ) [Suspect]
     Dosage: ORAL
     Route: 048
  4. ZOPICLONE [Concomitant]
  5. FLUOXETINE HYDROCHLORIDE [Concomitant]

REACTIONS (3)
  - ASCITES [None]
  - COLITIS [None]
  - DIARRHOEA HAEMORRHAGIC [None]
